FAERS Safety Report 18841201 (Version 1)
Quarter: 2021Q1

REPORT INFORMATION
  Report Type: Spontaneous
  Country: CZ (occurrence: CZ)
  Receive Date: 20210204
  Receipt Date: 20210204
  Transmission Date: 20210419
  Serious: Yes (Other)
  Sender: FDA-Public Use
  Company Number: CZ-TEVA-2021-CZ-1873444

PATIENT
  Age: 7 Decade
  Sex: Female

DRUGS (2)
  1. DICLOFENAC [Suspect]
     Active Substance: DICLOFENAC
     Indication: BACK PAIN
     Dosage: 75 MG FOR 25 YEARS
     Route: 065
     Dates: start: 1988, end: 2013
  2. NIMESULIDE [Suspect]
     Active Substance: NIMESULIDE
     Route: 065

REACTIONS (1)
  - Intestinal haemorrhage [Unknown]

NARRATIVE: CASE EVENT DATE: 2013
